FAERS Safety Report 21440608 (Version 1)
Quarter: 2022Q4

REPORT INFORMATION
  Report Type: Spontaneous
  Country: US (occurrence: None)
  Receive Date: 20221010
  Receipt Date: 20221010
  Transmission Date: 20230112
  Serious: No
  Sender: FDA-Public Use
  Company Number: None

PATIENT
  Age: 70 Year
  Sex: Male
  Weight: 67 kg

DRUGS (1)
  1. ROPINIROLE HYDROCHLORIDE [Suspect]
     Active Substance: ROPINIROLE HYDROCHLORIDE
     Indication: Restless legs syndrome
     Dosage: 1 TAB AT BEDTIME PO
     Route: 048
     Dates: start: 20211112, end: 20220826

REACTIONS (3)
  - Confusional state [None]
  - Hallucination [None]
  - Delirium [None]

NARRATIVE: CASE EVENT DATE: 20220826
